FAERS Safety Report 20416968 (Version 1)
Quarter: 2022Q1

REPORT INFORMATION
  Report Type: Spontaneous
  Country: US (occurrence: US)
  Receive Date: 20220202
  Receipt Date: 20220202
  Transmission Date: 20220424
  Serious: No
  Sender: FDA-Public Use
  Company Number: US-INCYTE CORPORATION-2022IN000870

PATIENT

DRUGS (1)
  1. JAKAFI [Suspect]
     Active Substance: RUXOLITINIB
     Indication: Essential thrombocythaemia
     Dosage: 10 MILLIGRAM, BID
     Route: 048
     Dates: start: 20211021

REACTIONS (3)
  - Diarrhoea [Unknown]
  - Abdominal pain upper [Unknown]
  - Off label use [Unknown]

NARRATIVE: CASE EVENT DATE: 20211021
